FAERS Safety Report 22182731 (Version 1)
Quarter: 2023Q2

REPORT INFORMATION
  Report Type: Spontaneous
  Country: CA (occurrence: CA)
  Receive Date: 20230406
  Receipt Date: 20230406
  Transmission Date: 20230721
  Serious: Yes (Other)
  Sender: FDA-Public Use
  Company Number: CA-SAMSUNG BIOEPIS-SB-2023-08774

PATIENT
  Age: 38 Year
  Sex: Female

DRUGS (1)
  1. ADALIMUMAB [Suspect]
     Active Substance: ADALIMUMAB
     Indication: Ankylosing spondylitis
     Dosage: SOLUTION SUBCUTANEOUS
     Route: 065

REACTIONS (3)
  - Ankylosing spondylitis [Not Recovered/Not Resolved]
  - Uterine infection [Not Recovered/Not Resolved]
  - Drug ineffective [Not Recovered/Not Resolved]
